FAERS Safety Report 8235177-3 (Version None)
Quarter: 2012Q1

REPORT INFORMATION
  Report Type: 
  Country: None (occurrence: None)
  Receive Date: 20120307
  Receipt Date: 20110309
  Transmission Date: 20120608
  Serious: Yes (Death)
  Sender: FDA-Public Use
  Company Number: PHHY2011US09143

PATIENT
  Age: 79 Year
  Sex: Male

DRUGS (3)
  1. AFINITOR [Suspect]
     Indication: PROSTATE CANCER
     Dosage: 10 MG, QD, ORAL
     Route: 048
     Dates: start: 20100830, end: 20110113
  2. LEXASN [Concomitant]
  3. LEVAQUIN [Concomitant]

REACTIONS (1)
  - RENAL FAILURE ACUTE [None]
